FAERS Safety Report 7644104-9 (Version None)
Quarter: 2011Q3

REPORT INFORMATION
  Report Type: 
  Country: None (occurrence: None)
  Receive Date: 20110729
  Receipt Date: 20110720
  Transmission Date: 20111222
  Serious: Yes (Other)
  Sender: FDA-Public Use
  Company Number: US-JNJFOC-20110709261

PATIENT
  Sex: Male
  Weight: 65.77 kg

DRUGS (4)
  1. REMERON [Concomitant]
     Indication: SLEEP DISORDER THERAPY
     Route: 048
     Dates: start: 20110601
  2. ZYTIGA [Suspect]
     Indication: PROSTATE CANCER
     Route: 048
     Dates: start: 20110630
  3. METOPROLOL TARTRATE [Concomitant]
     Indication: BLOOD PRESSURE
     Route: 048
     Dates: start: 20110501
  4. LASIX [Concomitant]
     Indication: BLOOD PRESSURE
     Route: 048
     Dates: start: 20110101

REACTIONS (1)
  - PROSTATIC SPECIFIC ANTIGEN INCREASED [None]
